FAERS Safety Report 7383297-8 (Version None)
Quarter: 2011Q1

REPORT INFORMATION
  Report Type: 
  Country: None (occurrence: None)
  Receive Date: 20110330
  Receipt Date: 20110316
  Transmission Date: 20110831
  Serious: Yes (Hospitalization, Other)
  Sender: FDA-Public Use
  Company Number: PHHY2011CH17760

PATIENT
  Sex: Male
  Weight: 60 kg

DRUGS (1)
  1. RITALIN [Suspect]
     Dosage: 20 MG, BID
     Dates: start: 20100101

REACTIONS (2)
  - TEMPORAL ARTERITIS [None]
  - HEADACHE [None]
